FAERS Safety Report 4866873-3 (Version None)
Quarter: 2005Q4

REPORT INFORMATION
  Report Type: 
  Country: None (occurrence: None)
  Receive Date: 20051222
  Receipt Date: 20051207
  Transmission Date: 20060501
  Serious: Yes (Hospitalization)
  Sender: FDA-Public Use
  Company Number: FR200512001497

PATIENT
  Age: 73 Year
  Sex: Female

DRUGS (9)
  1. FORTEO [Suspect]
     Indication: OSTEOPOROSIS
     Dosage: 20 UG, DAILY (1/D), SUBCUTANEOUS
     Route: 058
     Dates: start: 20051017
  2. FORTEO PEN (250MCG/ML) (FORTEO PEN 250MCG/ML (3ML)) PEN, DISPOSABLE [Concomitant]
  3. MEDIATENSYL (URAPIDIL) [Concomitant]
  4. PLAVIX [Concomitant]
  5. TENORMIN [Concomitant]
  6. PRAVASTATIN [Concomitant]
  7. LEVOTHYROXINE SODIUM [Concomitant]
  8. PARACETAMOL (PARACETAMOL) [Concomitant]
  9. STRESAM (ETIFOXINE) [Concomitant]

REACTIONS (2)
  - ABDOMINAL PAIN UPPER [None]
  - CHEST PAIN [None]
